FAERS Safety Report 24020991 (Version 1)
Quarter: 2024Q2

REPORT INFORMATION
  Report Type: Spontaneous
  Country: PL (occurrence: PL)
  Receive Date: 20240627
  Receipt Date: 20240627
  Transmission Date: 20240716
  Serious: Yes (Other)
  Sender: FDA-Public Use
  Company Number: PL-BRISTOL-MYERS SQUIBB COMPANY-2024-101174

PATIENT
  Sex: Male

DRUGS (1)
  1. ONUREG [Suspect]
     Active Substance: AZACITIDINE
     Indication: Acute myeloid leukaemia

REACTIONS (5)
  - Pancytopenia [Unknown]
  - Gastrointestinal disorder [Unknown]
  - Hiatus hernia [Unknown]
  - Gastric mucosa erythema [Unknown]
  - Parvovirus B19 infection [Unknown]
